FAERS Safety Report 23938168 (Version 1)
Quarter: 2024Q2

REPORT INFORMATION
  Report Type: Spontaneous
  Country: GB (occurrence: GB)
  Receive Date: 20240604
  Receipt Date: 20240604
  Transmission Date: 20240716
  Serious: Yes (Hospitalization, Other)
  Sender: FDA-Public Use
  Company Number: GB-MYLANLABS-2024M1049511

PATIENT
  Sex: Male

DRUGS (1)
  1. CLOZARIL [Suspect]
     Active Substance: CLOZAPINE
     Indication: Schizophrenia
     Dosage: 350 MILLIGRAM, BID (100 MG MANE AND 250 NOCTE)
     Route: 048
     Dates: start: 20210716, end: 20240524

REACTIONS (7)
  - Infection [Recovering/Resolving]
  - Renal impairment [Recovering/Resolving]
  - Hyperthermia [Recovering/Resolving]
  - Blood creatine phosphokinase increased [Recovering/Resolving]
  - Liver function test abnormal [Recovering/Resolving]
  - Full blood count abnormal [Recovering/Resolving]
  - C-reactive protein increased [Recovering/Resolving]
